FAERS Safety Report 21241536 (Version 1)
Quarter: 2022Q3

REPORT INFORMATION
  Report Type: Spontaneous
  Country: NO (occurrence: NO)
  Receive Date: 20220823
  Receipt Date: 20220823
  Transmission Date: 20221026
  Serious: Yes (Life-Threatening, Hospitalization, Disabling, Other)
  Sender: FDA-Public Use
  Company Number: None

PATIENT
  Age: 39 Year
  Sex: Female
  Weight: 85 kg

DRUGS (3)
  1. DISULFIRAM [Suspect]
     Active Substance: DISULFIRAM
     Indication: Alcoholism
     Dosage: UNIT DOSE: 200 MG, STRENGTH: 200 MG, FREQUENCY TIME : 1 DAY, DURATION : 69 DAYS
     Dates: start: 20211202, end: 20220208
  2. VITAMIN B [Concomitant]
     Active Substance: VITAMIN B
     Indication: Product used for unknown indication
  3. VITAMIN D [Concomitant]
     Active Substance: VITAMIN D NOS
     Indication: Product used for unknown indication

REACTIONS (14)
  - Coma [Recovered/Resolved]
  - Encephalopathy [Unknown]
  - Liver transplant [Recovered/Resolved with Sequelae]
  - Acute hepatic failure [Recovered/Resolved with Sequelae]
  - Fatigue [Unknown]
  - Decreased appetite [Unknown]
  - Somnolence [Unknown]
  - Jaundice [Unknown]
  - Nausea [Unknown]
  - Faeces pale [Unknown]
  - Abdominal distension [Unknown]
  - Vomiting [Unknown]
  - Chromaturia [Unknown]
  - Swelling [Unknown]

NARRATIVE: CASE EVENT DATE: 20220101
